FAERS Safety Report 9264338 (Version 2)
Quarter: 2013Q3

REPORT INFORMATION
  Report Type: Spontaneous
  Country: US (occurrence: US)
  Receive Date: 20130430
  Receipt Date: 20130701
  Transmission Date: 20140515
  Serious: Yes (Hospitalization, Other)
  Sender: FDA-Public Use
  Company Number: US-PFIZER INC-2013077625

PATIENT
  Age: 29 Year
  Sex: Male

DRUGS (4)
  1. REVATIO [Suspect]
     Indication: PULMONARY HYPERTENSION
     Dosage: 2-20 MG 3X/DAY
     Dates: start: 20121129
  2. REVATIO [Suspect]
     Indication: PULMONARY VASCULAR RESISTANCE ABNORMALITY
  3. REVATIO [Suspect]
     Indication: RIGHT VENTRICULAR DYSFUNCTION
  4. REVATIO [Suspect]
     Indication: CARDIAC DISORDER

REACTIONS (2)
  - Cardiac failure chronic [Unknown]
  - Off label use [Unknown]
